FAERS Safety Report 14289227 (Version 2)
Quarter: 2018Q3

REPORT INFORMATION
  Report Type: Spontaneous
  Country: US (occurrence: US)
  Receive Date: 20171215
  Receipt Date: 20180906
  Transmission Date: 20181010
  Serious: No
  Sender: FDA-Public Use
  Company Number: US-PFIZER INC-2017132544

PATIENT
  Age: 62 Year
  Sex: Female

DRUGS (3)
  1. GENOTROPIN [Suspect]
     Active Substance: SOMATROPIN
     Dosage: 0.6 MG, DAILY
     Dates: start: 20170619
  2. GENOTROPIN [Suspect]
     Active Substance: SOMATROPIN
     Dosage: 0.55 MG, UNK
  3. GENOTROPIN [Suspect]
     Active Substance: SOMATROPIN
     Dosage: 0.5 MG ALTERNATING WITH 0.6 MG DAILY

REACTIONS (10)
  - High density lipoprotein decreased [Unknown]
  - Vitamin B12 increased [Unknown]
  - Glycosylated haemoglobin increased [Unknown]
  - Drug prescribing error [Unknown]
  - Blood glucose increased [Unknown]
  - Asthenia [Unknown]
  - Fatigue [Unknown]
  - Weight increased [Unknown]
  - Skin wrinkling [Unknown]
  - Blood triglycerides increased [Unknown]
